FAERS Safety Report 7716412-4 (Version None)
Quarter: 2011Q3

REPORT INFORMATION
  Report Type: 
  Country: None (occurrence: None)
  Receive Date: 20110812
  Receipt Date: 20110512
  Transmission Date: 20111222
  Serious: Yes (Hospitalization)
  Sender: FDA-Public Use
  Company Number: MEDI-0012475

PATIENT
  Age: 4 Month
  Sex: Male
  Weight: 5.36 kg

DRUGS (4)
  1. FERROUS SULFATE TAB [Concomitant]
  2. SYNAGIS [Suspect]
     Indication: PREMATURE BABY
     Dosage: INTRAMUSCULAR ; INTRAMUSCULAR
     Route: 030
     Dates: start: 20101124, end: 20110121
  3. SYNAGIS [Suspect]
     Indication: PREMATURE BABY
     Dosage: INTRAMUSCULAR ; INTRAMUSCULAR
     Route: 030
     Dates: start: 20110216, end: 20110316
  4. POLYVITAMINS (VITAMINS NOS) [Concomitant]

REACTIONS (1)
  - PNEUMONIA RESPIRATORY SYNCYTIAL VIRAL [None]
